FAERS Safety Report 9563902 (Version 2)
Quarter: 2013Q4

REPORT INFORMATION
  Report Type: Spontaneous
  Country: AT (occurrence: AT)
  Receive Date: 20130927
  Receipt Date: 20131018
  Transmission Date: 20140711
  Serious: Yes (Other)
  Sender: FDA-Public Use
  Company Number: US-009507513-1309AUT009544

PATIENT
  Age: 59 Year
  Sex: Female

DRUGS (3)
  1. VICTRELIS [Suspect]
     Dosage: UNK
     Route: 048
     Dates: start: 20110912
  2. PEGINTERFERON ALFA-2B [Concomitant]
     Dosage: UNK
     Dates: start: 20120207
  3. RIBAVIRIN [Concomitant]
     Dosage: UNK
     Route: 048
     Dates: start: 20120207

REACTIONS (3)
  - Transient ischaemic attack [Unknown]
  - Anaemia [Unknown]
  - Adverse event [Unknown]
